FAERS Safety Report 24532281 (Version 6)
Quarter: 2025Q2

REPORT INFORMATION
  Report Type: Report from Study
  Country: US (occurrence: US)
  Receive Date: 20241022
  Receipt Date: 20250520
  Transmission Date: 20250717
  Serious: Yes (Hospitalization, Other)
  Sender: TAKEDA
  Company Number: US-TAKEDA-2022TUS096661

PATIENT
  Sex: Female
  Weight: 79 kg

DRUGS (35)
  1. HUMAN IMMUNOGLOBULIN G [Suspect]
     Active Substance: HUMAN IMMUNOGLOBULIN G
     Indication: Immune system disorder
     Dosage: 20 GRAM, Q3WEEKS
     Dates: start: 20221105
  2. HUMAN IMMUNOGLOBULIN G [Suspect]
     Active Substance: HUMAN IMMUNOGLOBULIN G
     Indication: Hypergammaglobulinaemia
  3. DIPHENHYDRAMINE [Concomitant]
     Active Substance: DIPHENHYDRAMINE
  4. HEPARIN [Concomitant]
     Active Substance: HEPARIN SODIUM
  5. ALBUTEROL SULFATE [Concomitant]
     Active Substance: ALBUTEROL SULFATE
  6. EPINEPHRINE [Concomitant]
     Active Substance: EPINEPHRINE
  7. SODIUM CHLORIDE [Concomitant]
     Active Substance: SODIUM CHLORIDE
  8. ATORVASTATIN CALCIUM [Concomitant]
     Active Substance: ATORVASTATIN CALCIUM
  9. CALCIUM\CHOLECALCIFEROL [Concomitant]
     Active Substance: CALCIUM\CHOLECALCIFEROL
  10. FLUTICASONE PROPIONATE [Concomitant]
     Active Substance: FLUTICASONE PROPIONATE
  11. MEMANTINE [Concomitant]
     Active Substance: MEMANTINE
  12. QUETIAPINE FUMARATE [Concomitant]
     Active Substance: QUETIAPINE FUMARATE
  13. ACETAMINOPHEN [Concomitant]
     Active Substance: ACETAMINOPHEN
  14. OXYGEN [Concomitant]
     Active Substance: OXYGEN
  15. GUAIFENESIN AND DEXTROMETHORPHAN [Concomitant]
     Active Substance: DEXTROMETHORPHAN\GUAIFENESIN
  16. SERTRALINE HYDROCHLORIDE [Concomitant]
     Active Substance: SERTRALINE HYDROCHLORIDE
  17. FISH OIL [Concomitant]
     Active Substance: FISH OIL
  18. CETIRIZINE HCL [Concomitant]
     Active Substance: CETIRIZINE HYDROCHLORIDE
  19. PULMICORT TURBUHALER [Concomitant]
     Active Substance: BUDESONIDE
  20. LIDOCAINE [Concomitant]
     Active Substance: LIDOCAINE
  21. PANTOPRAZOLE SODIUM [Concomitant]
     Active Substance: PANTOPRAZOLE SODIUM
  22. DIPHENHYDRAMINE HYDROCHLORIDE [Concomitant]
     Active Substance: DIPHENHYDRAMINE HYDROCHLORIDE
  23. GUAIFENESIN [Concomitant]
     Active Substance: GUAIFENESIN
  24. DOCUSATE SODIUM [Concomitant]
     Active Substance: DOCUSATE SODIUM
  25. MILK OF MAGNESIA [Concomitant]
     Active Substance: MAGNESIUM HYDROXIDE
  26. MIRALAX [Concomitant]
     Active Substance: POLYETHYLENE GLYCOL 3350
  27. LEVOTHYROXINE SODIUM [Concomitant]
     Active Substance: LEVOTHYROXINE SODIUM
  28. SYSTANE COMPLETE [Concomitant]
     Active Substance: PROPYLENE GLYCOL
  29. BIOFREEZE [Concomitant]
     Active Substance: MENTHOL
  30. SENNA [Concomitant]
     Active Substance: SENNOSIDES
  31. CALCIUM CARBONATE [Concomitant]
     Active Substance: CALCIUM CARBONATE
  32. VITAMIN B [Concomitant]
     Active Substance: VITAMIN B
  33. FERROUS SULFATE [Concomitant]
     Active Substance: FERROUS SULFATE
  34. BUDESONIDE [Concomitant]
     Active Substance: BUDESONIDE
  35. IPRATROPIUM BROMIDE [Concomitant]
     Active Substance: IPRATROPIUM BROMIDE

REACTIONS (8)
  - Intestinal obstruction [Unknown]
  - Fall [Unknown]
  - Shoulder fracture [Unknown]
  - Nasopharyngitis [Unknown]
  - Viral infection [Unknown]
  - Weight decreased [Unknown]
  - Back pain [Unknown]
  - Arthralgia [Unknown]
